FAERS Safety Report 9927806 (Version 2)
Quarter: 2015Q1

REPORT INFORMATION
  Report Type: Report from Study
  Country: US (occurrence: US)
  Receive Date: 20140227
  Receipt Date: 20150317
  Transmission Date: 20150721
  Serious: Yes (Death)
  Sender: FDA-Public Use
  Company Number: US-ROCHE-1353700

PATIENT
  Age: 58 Year
  Sex: Male

DRUGS (9)
  1. XELODA [Suspect]
     Active Substance: CAPECITABINE
     Dosage: 4 TABLETS 2 TIMES A DAY??14 DAYS ON THEN 7 DAY OFF
     Route: 048
  2. XELODA [Suspect]
     Active Substance: CAPECITABINE
     Dosage: 3 TABLETS 2 TIMES A DAY??FOR 7 DAYS THEN, 7 DAYS OFF
     Route: 048
  3. ATIVAN [Concomitant]
     Active Substance: LORAZEPAM
  4. VICODIN [Concomitant]
     Active Substance: ACETAMINOPHEN\HYDROCODONE BITARTRATE
  5. MIRALAX [Concomitant]
     Active Substance: POLYETHYLENE GLYCOL 3350
  6. DIFLUCAN [Concomitant]
     Active Substance: FLUCONAZOLE
  7. XELODA [Suspect]
     Active Substance: CAPECITABINE
     Indication: COLORECTAL CANCER
     Route: 048
     Dates: start: 20120911, end: 20130514
  8. XELODA [Suspect]
     Active Substance: CAPECITABINE
     Route: 048
  9. SENNA S [Concomitant]
     Active Substance: DOCUSATE SODIUM\SENNA LEAF

REACTIONS (5)
  - Death [Fatal]
  - Pleural effusion [Unknown]
  - Candida infection [Unknown]
  - Disease progression [Unknown]
  - Dysphagia [Unknown]

NARRATIVE: CASE EVENT DATE: 20130529
